FAERS Safety Report 5627761-8 (Version None)
Quarter: 2008Q1

REPORT INFORMATION
  Report Type: 
  Country: None (occurrence: None)
  Receive Date: 20080215
  Receipt Date: 20080212
  Transmission Date: 20080703
  Serious: Yes (Death, Hospitalization)
  Sender: FDA-Public Use
  Company Number: A0709756A

PATIENT
  Age: 84 Year
  Sex: Male
  Weight: 123 kg

DRUGS (3)
  1. SERETIDE [Suspect]
     Indication: CHRONIC OBSTRUCTIVE PULMONARY DISEASE
     Route: 055
  2. WARFARIN SODIUM [Concomitant]
  3. DIGOXIN [Concomitant]

REACTIONS (1)
  - RESPIRATORY FAILURE [None]
